FAERS Safety Report 5713786-0 (Version None)
Quarter: 2008Q2

REPORT INFORMATION
  Report Type: 
  Country: None (occurrence: None)
  Receive Date: 20080421
  Receipt Date: 20080410
  Transmission Date: 20081010
  Serious: Yes (Other)
  Sender: FDA-Public Use
  Company Number: 2008US001058

PATIENT
  Age: 44 Year
  Sex: Male

DRUGS (7)
  1. PROGRAF [Suspect]
     Indication: LIVER TRANSPLANT
     Dates: start: 20061104
  2. MYCOPHENOLATE MOFETIL [Suspect]
     Indication: LIVER TRANSPLANT
     Dosage: 750 MG, BID, ORAL
     Route: 048
     Dates: start: 20051019
  3. SIROLIMUS(SIROLIMUS) [Suspect]
     Indication: LIVER TRANSPLANT
     Dosage: 4 MG, ORAL
     Route: 048
     Dates: start: 20051213, end: 20061101
  4. LOPRESSOR [Concomitant]
  5. LIPITOR [Concomitant]
  6. SEPTRA [Concomitant]
  7. ASPIRIN [Concomitant]

REACTIONS (1)
  - HEPATIC STEATOSIS [None]
